FAERS Safety Report 5588655-X (Version None)
Quarter: 2008Q1

REPORT INFORMATION
  Report Type: 
  Country: None (occurrence: None)
  Receive Date: 20080111
  Receipt Date: 20080104
  Transmission Date: 20080703
  Serious: Yes (Disabling, Other)
  Sender: FDA-Public Use
  Company Number: US-PFIZER INC-2007101073

PATIENT
  Sex: Female
  Weight: 49.9 kg

DRUGS (14)
  1. ZOLOFT [Suspect]
     Indication: DEPRESSION
  2. VISTARIL CAP [Suspect]
     Dates: start: 20010101, end: 20010101
  3. WELLBUTRIN [Suspect]
     Dates: start: 20010101, end: 20010101
  4. CALCIUM GLUCONATE [Concomitant]
  5. TEA, GREEN [Concomitant]
  6. VITAMIN B-12 [Concomitant]
  7. VITAMIN E [Concomitant]
  8. ECHINACEA [Concomitant]
  9. MELATONIN [Concomitant]
  10. IBUPROFEN [Concomitant]
  11. CLONAZEPAM [Concomitant]
  12. ABILIFY [Concomitant]
  13. TRAZODONE HCL [Concomitant]
  14. NAPROXEN [Concomitant]

REACTIONS (35)
  - AFFECT LABILITY [None]
  - AKATHISIA [None]
  - ANXIETY [None]
  - BACK INJURY [None]
  - CONFUSIONAL STATE [None]
  - DEPRESSION [None]
  - DIARRHOEA [None]
  - DISTURBANCE IN ATTENTION [None]
  - DIZZINESS [None]
  - DRY MOUTH [None]
  - FATIGUE [None]
  - FEELING ABNORMAL [None]
  - GAIT DISTURBANCE [None]
  - GRAND MAL CONVULSION [None]
  - HEADACHE [None]
  - HYPOMANIA [None]
  - INSOMNIA [None]
  - LETHARGY [None]
  - MENTAL DISORDER [None]
  - MOTOR DYSFUNCTION [None]
  - MUSCLE SPASMS [None]
  - MUSCLE TWITCHING [None]
  - NAUSEA [None]
  - NECK INJURY [None]
  - NERVOUSNESS [None]
  - NIGHTMARE [None]
  - PAIN [None]
  - RESTLESSNESS [None]
  - ROAD TRAFFIC ACCIDENT [None]
  - SCOLIOSIS [None]
  - SENSORY DISTURBANCE [None]
  - SOMNOLENCE [None]
  - SUICIDAL IDEATION [None]
  - TREMOR [None]
  - VISION BLURRED [None]
